FAERS Safety Report 17076979 (Version 2)
Quarter: 2019Q4

REPORT INFORMATION
  Report Type: Spontaneous
  Country: FR (occurrence: FR)
  Receive Date: 20191126
  Receipt Date: 20191202
  Transmission Date: 20200122
  Serious: Yes (Hospitalization, Other)
  Sender: FDA-Public Use
  Company Number: FR-MYLANLABS-2019M1114956

PATIENT
  Age: 72 Year
  Sex: Male

DRUGS (3)
  1. DOLUTEGRAVIR;RILPIVIRINE [Interacting]
     Active Substance: DOLUTEGRAVIR SODIUM\RILPIVIRINE HYDROCHLORIDE
     Indication: HIV INFECTION
     Dosage: UNK, QD (50/25 MG PER DAY)
  2. METFORMIN [Suspect]
     Active Substance: METFORMIN HYDROCHLORIDE
     Indication: TYPE 2 DIABETES MELLITUS
     Dosage: 100 MILLIGRAM,BID (MORNING AND EVENING)
  3. IBUPROFEN. [Interacting]
     Active Substance: IBUPROFEN
     Indication: PRODUCT USED FOR UNKNOWN INDICATION
     Dosage: UNK

REACTIONS (4)
  - Drug interaction [Unknown]
  - Glomerular filtration rate decreased [Unknown]
  - Acute kidney injury [Unknown]
  - Lactic acidosis [Unknown]
